FAERS Safety Report 8631073 (Version 3)
Quarter: 2013Q1

REPORT INFORMATION
  Report Type: Spontaneous
  Country: CY (occurrence: None)
  Receive Date: 20120611
  Receipt Date: 20121001
  Transmission Date: 20140127
  Serious: Yes (Hospitalization, Other)
  Sender: FDA-Public Use
  Company Number: CY-1192234

PATIENT
  Age: 26 Year
  Sex: Female
  Weight: 65 kg

DRUGS (6)
  1. MOXIFLOXACIN HYDROCHLORIDE [Suspect]
     Indication: ULCERATIVE KERATITIS
     Dosage: THE FIRST 48 HOURS
     Route: 047
     Dates: start: 20120517, end: 20120518
  2. HEXAMIDINE [Suspect]
     Indication: ULCERATIVE KERATITIS
     Route: 047
     Dates: start: 20120517
  3. CETRIMIDE\CHLORHEXIDINE [Suspect]
     Indication: ACANTHAMOEBA KERATITIS
     Dosage: 12X/DAY
     Dates: start: 20120517, end: 20120524
  4. FOLIC ACID [Concomitant]
  5. CALCIUM [Concomitant]
  6. VITAMINS [Concomitant]

REACTIONS (17)
  - Corneal perforation [None]
  - Corneal epithelium defect [None]
  - Corneal thinning [None]
  - Corneal infiltrates [None]
  - Flat anterior chamber of eye [None]
  - Anterior chamber disorder [None]
  - Aqueous humour leakage [None]
  - Visual acuity reduced [None]
  - Eye discharge [None]
  - Erythema of eyelid [None]
  - Eyelid oedema [None]
  - Eye pain [None]
  - Ocular hyperaemia [None]
  - Foreign body sensation in eyes [None]
  - Maternal exposure during pregnancy [None]
  - Caesarean section [None]
  - Corneal transplant [None]
